FAERS Safety Report 5335329-6 (Version None)
Quarter: 2007Q2

REPORT INFORMATION
  Report Type: 
  Country: None (occurrence: None)
  Receive Date: 20070525
  Receipt Date: 20070514
  Transmission Date: 20071010
  Serious: Yes (Other)
  Sender: FDA-Public Use
  Company Number: JP-PFIZER INC-2007037407

PATIENT
  Age: 59 Year
  Sex: Male

DRUGS (3)
  1. SULPERAZON [Suspect]
  2. GASTER [Concomitant]
  3. NAFAMOSTAT MESILATE [Concomitant]

REACTIONS (1)
  - BLOOD BILIRUBIN INCREASED [None]
